FAERS Safety Report 6917671-8 (Version None)
Quarter: 2010Q3

REPORT INFORMATION
  Report Type: 
  Country: None (occurrence: None)
  Receive Date: 20100810
  Receipt Date: 20100729
  Transmission Date: 20110219
  Serious: Yes (Other)
  Sender: FDA-Public Use
  Company Number: BE-ELI_LILLY_AND_COMPANY-BE201003001512

PATIENT
  Sex: Male

DRUGS (1)
  1. VARDENAFIL HYDROCHLORIDE (LEVITRA) [Suspect]

REACTIONS (2)
  - AMAUROSIS FUGAX [None]
  - INTRAOCULAR PRESSURE INCREASED [None]
